FAERS Safety Report 24548797 (Version 1)
Quarter: 2024Q4

REPORT INFORMATION
  Report Type: Spontaneous
  Country: JP (occurrence: JP)
  Receive Date: 20241025
  Receipt Date: 20241025
  Transmission Date: 20250115
  Serious: Yes (Hospitalization)
  Sender: Alora Pharma
  Company Number: JP-ACELLA PHARMACEUTICALS, LLC-2024ALO00496

PATIENT
  Age: 27 Year
  Sex: Male

DRUGS (12)
  1. DEXTROMETHORPHAN [Suspect]
     Active Substance: DEXTROMETHORPHAN
     Indication: Euphoric mood
     Dosage: INITIAL USE; UNKNOWN
  2. DEXTROMETHORPHAN [Suspect]
     Active Substance: DEXTROMETHORPHAN
     Indication: Dissociation
     Dosage: AGE 27; 600 MG; 25-APR
  3. DEXTROMETHORPHAN [Suspect]
     Active Substance: DEXTROMETHORPHAN
     Dosage: AGE 27; 600 MG; 29-APR
  4. DEXTROMETHORPHAN [Suspect]
     Active Substance: DEXTROMETHORPHAN
     Dosage: 300 MG; 08-MAY
  5. ALCOHOL [Suspect]
     Active Substance: ALCOHOL
     Dosage: STARTED AGE 22
     Route: 048
  6. ALCOHOL [Suspect]
     Active Substance: ALCOHOL
     Dosage: 128 G, 1X/DAY
     Route: 048
  7. ALCOHOL [Suspect]
     Active Substance: ALCOHOL
     Dosage: AGE 26; DRANK EVERY DAY
     Route: 048
  8. ALCOHOL [Suspect]
     Active Substance: ALCOHOL
     Dosage: 64 G, 1X/DAY
     Route: 048
  9. ALCOHOL [Suspect]
     Active Substance: ALCOHOL
     Dosage: 32 G IN THE MORNING; 08-MAY
     Route: 048
  10. ZOLPIDEM [Concomitant]
     Active Substance: ZOLPIDEM TARTRATE
     Indication: Insomnia
     Dosage: 5 MG
  11. ACAMPROSATE [Concomitant]
     Active Substance: ACAMPROSATE
     Dosage: 999 MG, 1X/DAY
  12. SS BRON [CAFFEINE;CHLORPHENAMINE MALEATE;DEXTROMETHORPHAN HYDROBROMIDE [Concomitant]

REACTIONS (3)
  - Euphoric mood [Recovered/Resolved]
  - Hallucination, visual [Recovered/Resolved]
  - Drug abuse [Recovered/Resolved]
